FAERS Safety Report 7622083-8 (Version None)
Quarter: 2011Q3

REPORT INFORMATION
  Report Type: 
  Country: None (occurrence: None)
  Receive Date: 20110720
  Receipt Date: 20101216
  Transmission Date: 20111222
  Serious: Yes (Other)
  Sender: FDA-Public Use
  Company Number: US-BAYER-201037696NA

PATIENT
  Age: 25 Year
  Sex: Female
  Weight: 53.515 kg

DRUGS (12)
  1. YASMIN [Suspect]
     Indication: ACNE
     Dosage: UNK
     Dates: start: 20030101, end: 20080101
  2. YAZ [Suspect]
     Indication: ACNE
  3. CLARITIN [Concomitant]
     Indication: MULTIPLE ALLERGIES
     Dosage: UNK UNK, PRN
     Route: 048
     Dates: start: 19950501
  4. TYLENOL-500 [Concomitant]
     Indication: HEADACHE
     Dosage: 500 MG, PRN
     Dates: start: 20000801
  5. MULTI-VITAMIN [Concomitant]
     Indication: MEDICAL DIET
     Dosage: 1 DF, QD
     Route: 048
     Dates: start: 20000801
  6. NASONEX [Concomitant]
  7. SINGULAIR [Concomitant]
  8. IBUPROFEN (ADVIL) [Concomitant]
  9. VENTOLIN HFA [Concomitant]
     Indication: ASTHMA
     Dosage: UNK UNK, PRN
     Route: 055
     Dates: start: 19850501
  10. QVAR 40 [Concomitant]
     Route: 055
  11. DROSPIRENONE AND ETHINYL ESTRADIOL [Suspect]
     Indication: ACNE
  12. MOTRIN [Concomitant]

REACTIONS (6)
  - CHOLECYSTITIS CHRONIC [None]
  - BILIARY DYSKINESIA [None]
  - ABDOMINAL DISTENSION [None]
  - GALLBLADDER CHOLESTEROLOSIS [None]
  - ABDOMINAL PAIN UPPER [None]
  - NAUSEA [None]
